FAERS Safety Report 6743019-8 (Version None)
Quarter: 2010Q2

REPORT INFORMATION
  Report Type: 
  Country: None (occurrence: None)
  Receive Date: 20100527
  Receipt Date: 20100518
  Transmission Date: 20101027
  Serious: No
  Sender: FDA-Public Use
  Company Number: US-BIOGENIDEC-2010BI016992

PATIENT
  Sex: Female

DRUGS (2)
  1. TYSABRI [Suspect]
     Indication: MULTIPLE SCLEROSIS
     Route: 042
     Dates: start: 20080117, end: 20081222
  2. TYSABRI [Suspect]
     Route: 042
     Dates: start: 20100217

REACTIONS (2)
  - MEMORY IMPAIRMENT [None]
  - PHOBIA [None]
